FAERS Safety Report 7790334-5 (Version None)
Quarter: 2011Q3

REPORT INFORMATION
  Report Type: 
  Country: None (occurrence: None)
  Receive Date: 20110930
  Receipt Date: 20110913
  Transmission Date: 20111222
  Serious: No
  Sender: FDA-Public Use
  Company Number: US-ROXANE LABORATORIES, INC.-2011-RO-01281RO

PATIENT
  Age: 15 Year
  Sex: Female

DRUGS (2)
  1. PROTOPIC [Suspect]
  2. PREDNISONE [Suspect]

REACTIONS (1)
  - URINE AMPHETAMINE POSITIVE [None]
